FAERS Safety Report 5943891-5 (Version None)
Quarter: 2008Q4

REPORT INFORMATION
  Report Type: 
  Country: None (occurrence: None)
  Receive Date: 20081106
  Receipt Date: 20081104
  Transmission Date: 20090506
  Serious: Yes (Other)
  Sender: FDA-Public Use
  Company Number: US-ASTRAZENECA-2008UW24639

PATIENT
  Age: 63 Year
  Sex: Female

DRUGS (15)
  1. PULMICORT FLEXHALER [Suspect]
     Indication: BRONCHITIS
     Route: 055
  2. PULMICORT FLEXHALER [Suspect]
     Indication: DYSPNOEA
     Route: 055
  3. SPIRIVA [Concomitant]
  4. ALBUTEROL [Concomitant]
  5. XANAX [Concomitant]
  6. TESILON [Concomitant]
  7. ANCENET [Concomitant]
  8. COUMADIN [Concomitant]
  9. ZANTAC [Concomitant]
  10. ACIPHEX [Concomitant]
  11. SINGULAIR [Concomitant]
  12. SYNTHROID [Concomitant]
  13. CELEXA [Concomitant]
  14. PHENERGAN HCL [Concomitant]
  15. ZOFRAN [Concomitant]

REACTIONS (6)
  - BREAST CANCER METASTATIC [None]
  - DEVICE BREAKAGE [None]
  - DRUG DELIVERY SYSTEM MALFUNCTION [None]
  - DRUG INEFFECTIVE [None]
  - DYSPNOEA [None]
  - THROMBOSIS [None]
